FAERS Safety Report 18538082 (Version 3)
Quarter: 2021Q1

REPORT INFORMATION
  Report Type: Spontaneous
  Country: IT (occurrence: IT)
  Receive Date: 20201123
  Receipt Date: 20210204
  Transmission Date: 20210419
  Serious: Yes (Death)
  Sender: FDA-Public Use
  Company Number: IT-009507513-2011ITA010278

PATIENT
  Age: 55 Year
  Sex: Male

DRUGS (10)
  1. KEYTRUDA [Suspect]
     Active Substance: PEMBROLIZUMAB
     Dosage: UNK
     Dates: start: 20200910, end: 20200910
  2. KEYTRUDA [Suspect]
     Active Substance: PEMBROLIZUMAB
     Dosage: UNK
     Dates: start: 20200730, end: 20200730
  3. KEYTRUDA [Suspect]
     Active Substance: PEMBROLIZUMAB
     Dosage: UNK
     Dates: start: 20201001, end: 20201001
  4. KEYTRUDA [Suspect]
     Active Substance: PEMBROLIZUMAB
     Dosage: UNK
     Dates: start: 20200618, end: 20200618
  5. CISPLATIN. [Concomitant]
     Active Substance: CISPLATIN
     Dosage: 75 MICROGRAM PER SQ METER, CYCLICAL
     Route: 042
     Dates: start: 20200507, end: 20200709
  6. KEYTRUDA [Suspect]
     Active Substance: PEMBROLIZUMAB
     Dosage: UNK
     Dates: start: 20200528, end: 20200528
  7. KEYTRUDA [Suspect]
     Active Substance: PEMBROLIZUMAB
     Dosage: UNK
     Dates: start: 20200820, end: 20200820
  8. DENOSUMAB [Concomitant]
     Active Substance: DENOSUMAB
  9. ALIMTA [Concomitant]
     Active Substance: PEMETREXED DISODIUM
     Dosage: 500 MICROGRAM PER SQ METER, CYCLICAL
     Route: 042
     Dates: start: 20200507, end: 20201001
  10. KEYTRUDA [Suspect]
     Active Substance: PEMBROLIZUMAB
     Indication: LUNG NEOPLASM MALIGNANT
     Dosage: 200 MILLIGRAM, CYCLICAL
     Route: 042
     Dates: start: 20200507, end: 20200507

REACTIONS (2)
  - Interstitial lung disease [Fatal]
  - Dyspnoea [Fatal]

NARRATIVE: CASE EVENT DATE: 20201016
